FAERS Safety Report 5096625-3 (Version None)
Quarter: 2006Q3

REPORT INFORMATION
  Report Type: 
  Country: None (occurrence: None)
  Receive Date: 20060831
  Receipt Date: 20060816
  Transmission Date: 20061208
  Serious: Yes (Life-Threatening, Other)
  Sender: FDA-Public Use
  Company Number: 2006-05-0091

PATIENT
  Age: 54 Year
  Sex: Female
  Weight: 90.7194 kg

DRUGS (5)
  1. CHLOR-TRIMETON LONG ACTING [Suspect]
     Indication: SEASONAL ALLERGY
     Dosage: 1 DF; QD; PO
     Route: 048
     Dates: start: 20060101, end: 20060101
  2. ALBUTEROL [Concomitant]
  3. CROMOLYN SODIUM [Concomitant]
  4. TERBUTALINE [Concomitant]
  5. CODEINE SUL TAB [Concomitant]

REACTIONS (3)
  - ANAPHYLACTIC REACTION [None]
  - REACTION TO COLOURING [None]
  - REACTION TO DRUG EXCIPIENTS [None]
